FAERS Safety Report 8509808 (Version 2)
Quarter: 2013Q3

REPORT INFORMATION
  Report Type: Report from Study
  Country: MX (occurrence: MX)
  Receive Date: 20120413
  Receipt Date: 20130712
  Transmission Date: 20140515
  Serious: Yes (Hospitalization)
  Sender: FDA-Public Use
  Company Number: PHHY2012MX029868

PATIENT
  Age: 66 Year
  Sex: Female

DRUGS (2)
  1. CO-DIOVAN [Suspect]
     Indication: HYPERTENSION
     Dosage: 1 DF (160/12.5 MG ), DAILY
     Dates: start: 201110
  2. NEO MELUBRINA [Concomitant]
     Indication: INFECTION
     Dosage: 1 DF, DAILY
     Dates: start: 201203

REACTIONS (1)
  - Cataract [Recovered/Resolved]
